FAERS Safety Report 21163391 (Version 1)
Quarter: 2022Q3

REPORT INFORMATION
  Report Type: Spontaneous
  Country: None (occurrence: US)
  Receive Date: 20220802
  Receipt Date: 20220802
  Transmission Date: 20221026
  Serious: No
  Sender: FDA-Public Use
  Company Number: US-Breckenridge Pharmaceutical, Inc.-2131463

PATIENT
  Age: 47 Year
  Sex: Female
  Weight: 93.182 kg

DRUGS (3)
  1. DULOXETINE [Suspect]
     Active Substance: DULOXETINE
     Indication: Depression
     Route: 048
  2. GABAPENTIN [Suspect]
     Active Substance: GABAPENTIN
  3. LYRICA [Suspect]
     Active Substance: PREGABALIN

REACTIONS (2)
  - Obsessive thoughts [Unknown]
  - Obsessive-compulsive disorder [Unknown]
